FAERS Safety Report 21508142 (Version 1)
Quarter: 2022Q4

REPORT INFORMATION
  Report Type: Report from Study
  Country: US (occurrence: US)
  Receive Date: 20221026
  Receipt Date: 20221026
  Transmission Date: 20230113
  Serious: No
  Sender: FDA-Public Use
  Company Number: US-ABBVIE-4162910

PATIENT
  Age: 60 Year
  Sex: Male

DRUGS (3)
  1. HUMIRA [Suspect]
     Active Substance: ADALIMUMAB
     Indication: Rheumatoid arthritis
     Route: 058
  2. MODERNA [Concomitant]
     Indication: COVID-19 immunisation
     Dosage: 1 IN ONCE - 2ND DOSE
     Route: 030
     Dates: start: 20210909, end: 20210909
  3. MODERNA [Concomitant]
     Indication: COVID-19 immunisation
     Dosage: 1 IN ONCE - 1ST DOSE
     Route: 030
     Dates: start: 20210808, end: 20210808

REACTIONS (2)
  - Rash vesicular [Not Recovered/Not Resolved]
  - Rash [Not Recovered/Not Resolved]

NARRATIVE: CASE EVENT DATE: 20221008
